FAERS Safety Report 9749338 (Version 3)
Quarter: 2017Q3

REPORT INFORMATION
  Report Type: Spontaneous
  Country: JP (occurrence: JP)
  Receive Date: 20131212
  Receipt Date: 20170711
  Transmission Date: 20171128
  Serious: Yes (Hospitalization)
  Sender: FDA-Public Use
  Company Number: JP-BAYER-2013-135222

PATIENT
  Age: 41 Year
  Sex: Female
  Weight: 72 kg

DRUGS (2)
  1. YAZ [Suspect]
     Active Substance: DROSPIRENONE\ETHINYL ESTRADIOL
     Indication: DYSMENORRHOEA
     Dosage: DAILY DOSE 1 DF
     Route: 048
     Dates: start: 20130313, end: 20130523
  2. YAZ [Suspect]
     Active Substance: DROSPIRENONE\ETHINYL ESTRADIOL
     Indication: MENORRHAGIA

REACTIONS (4)
  - Chest pain [Recovered/Resolved]
  - Pulmonary embolism [Recovered/Resolved]
  - Venous thrombosis limb [Recovered/Resolved]
  - Pleural effusion [Recovered/Resolved]

NARRATIVE: CASE EVENT DATE: 20130519
